FAERS Safety Report 6227477-3 (Version None)
Quarter: 2009Q2

REPORT INFORMATION
  Report Type: 
  Country: None (occurrence: None)
  Receive Date: 20090612
  Receipt Date: 20090602
  Transmission Date: 20091009
  Serious: Yes (Hospitalization, Other)
  Sender: FDA-Public Use
  Company Number: PHHY2009FR21961

PATIENT
  Sex: Female

DRUGS (5)
  1. NEORAL [Suspect]
     Indication: BONE MARROW TRANSPLANT
     Dosage: UNK
     Route: 048
  2. NEORAL [Suspect]
     Dosage: UNK
  3. TARGOCID [Suspect]
     Indication: URETHRAL CYST
     Dosage: 400 MG, BID
     Route: 042
     Dates: start: 20090430
  4. TARGOCID [Suspect]
     Dosage: 400 MG/DAY
     Dates: end: 20090510
  5. VALACYCLOVIR HCL [Suspect]
     Dosage: UNK
     Route: 048
     Dates: end: 20090515

REACTIONS (5)
  - ACCIDENTAL OVERDOSE [None]
  - BLOOD LACTATE DEHYDROGENASE INCREASED [None]
  - DRUG LEVEL INCREASED [None]
  - RENAL FAILURE [None]
  - URETHRAL CYST [None]
